FAERS Safety Report 7397455-X (Version None)
Quarter: 2011Q2

REPORT INFORMATION
  Report Type: 
  Country: None (occurrence: None)
  Receive Date: 20110406
  Receipt Date: 20110325
  Transmission Date: 20111010
  Serious: Yes (Other)
  Sender: FDA-Public Use
  Company Number: PHHY2011AU25257

PATIENT
  Sex: Female

DRUGS (1)
  1. ACLASTA [Suspect]
     Dosage: 5 MG
     Route: 042

REACTIONS (5)
  - DRUG INEFFECTIVE [None]
  - PELVIC FRACTURE [None]
  - WRIST FRACTURE [None]
  - IMPAIRED HEALING [None]
  - HAND FRACTURE [None]
